FAERS Safety Report 14564092 (Version 7)
Quarter: 2018Q2

REPORT INFORMATION
  Report Type: Report from Study
  Country: CA (occurrence: CA)
  Receive Date: 20180222
  Receipt Date: 20180627
  Transmission Date: 20180711
  Serious: Yes (Hospitalization, Other)
  Sender: FDA-Public Use
  Company Number: CA-BRISTOL-MYERS SQUIBB COMPANY-BMS-2017-084042

PATIENT
  Age: 41 Year
  Sex: Female

DRUGS (2)
  1. ABATACEPT [Suspect]
     Active Substance: ABATACEPT
     Indication: PRODUCT USED FOR UNKNOWN INDICATION
     Dosage: 750 MG, Q4WK
     Route: 042
     Dates: start: 20180122
  2. ABATACEPT [Suspect]
     Active Substance: ABATACEPT
     Indication: RHEUMATOID ARTHRITIS
     Dosage: 750 MG, Q4WK
     Route: 042
     Dates: start: 20170819

REACTIONS (20)
  - Fibromyalgia [Recovering/Resolving]
  - Cough [Unknown]
  - Seasonal allergy [Unknown]
  - Pericardial effusion [Unknown]
  - Fatigue [Recovered/Resolved]
  - Pericarditis [Unknown]
  - Tooth disorder [Recovered/Resolved]
  - Urinary tract infection [Recovering/Resolving]
  - Sinusitis [Recovering/Resolving]
  - Influenza [Not Recovered/Not Resolved]
  - Dysphonia [Not Recovered/Not Resolved]
  - Asthenia [Unknown]
  - Dizziness [Unknown]
  - Chest pain [Unknown]
  - Migraine [Unknown]
  - Gait disturbance [Recovered/Resolved]
  - Nasal congestion [Not Recovered/Not Resolved]
  - Chills [Recovering/Resolving]
  - Rhinorrhoea [Unknown]
  - Pain [Recovering/Resolving]

NARRATIVE: CASE EVENT DATE: 20170821
